FAERS Safety Report 19685676 (Version 7)
Quarter: 2022Q1

REPORT INFORMATION
  Report Type: Report from Study
  Country: ES (occurrence: ES)
  Receive Date: 20210811
  Receipt Date: 20220216
  Transmission Date: 20220423
  Serious: Yes (Other)
  Sender: FDA-Public Use
  Company Number: ES-BOEHRINGERINGELHEIM-2021-BI-090821

PATIENT
  Age: 81 Year
  Sex: Male

DRUGS (1)
  1. OFEV [Suspect]
     Active Substance: NINTEDANIB
     Indication: Idiopathic pulmonary fibrosis
     Dosage: 150 MG/12 H
     Route: 048
     Dates: start: 20180430

REACTIONS (15)
  - Pyrexia [Recovered/Resolved]
  - Tonsillitis [Recovered/Resolved]
  - Respiratory tract infection [Recovered/Resolved]
  - Ocular hyperaemia [Recovered/Resolved]
  - Flatulence [Recovered/Resolved]
  - Eructation [Recovered/Resolved]
  - Chest pain [Recovered/Resolved]
  - Eye pruritus [Recovered/Resolved]
  - Rhinorrhoea [Not Recovered/Not Resolved]
  - Flatulence [Not Recovered/Not Resolved]
  - Dyspepsia [Recovered/Resolved]
  - Back pain [Recovered/Resolved]
  - Ligament sprain [Not Recovered/Not Resolved]
  - Insomnia [Recovered/Resolved]
  - Diarrhoea [Not Recovered/Not Resolved]

NARRATIVE: CASE EVENT DATE: 20210201
